FAERS Safety Report 6904632-8 (Version None)
Quarter: 2010Q3

REPORT INFORMATION
  Report Type: 
  Country: None (occurrence: None)
  Receive Date: 20100804
  Receipt Date: 20090622
  Transmission Date: 20110219
  Serious: No
  Sender: FDA-Public Use
  Company Number: US-PFIZER INC-2009203698

PATIENT

DRUGS (3)
  1. LYRICA [Suspect]
  2. NEURONTIN [Concomitant]
     Dosage: UNK
  3. CYMBALTA [Concomitant]
     Dosage: UNK

REACTIONS (2)
  - LABORATORY TEST ABNORMAL [None]
  - VISION BLURRED [None]
